FAERS Safety Report 5168157-5 (Version None)
Quarter: 2006Q4

REPORT INFORMATION
  Report Type: 
  Country: None (occurrence: None)
  Receive Date: 20061208
  Receipt Date: 20041029
  Transmission Date: 20070319
  Serious: Yes (Death, Disabling, Other)
  Sender: FDA-Public Use
  Company Number: US-PURDUE-USA_2004_0017465

PATIENT
  Age: 18 Year
  Sex: Male

DRUGS (2)
  1. OXYCONTIN [Suspect]
     Indication: PAIN
     Dosage: UNK MG, UNK
     Route: 065
  2. ALCOHOL [Suspect]
     Indication: ALCOHOL USE
     Dosage: UNK, UNK

REACTIONS (9)
  - ALCOHOL WITHDRAWAL SYNDROME [None]
  - COMPLETED SUICIDE [None]
  - DEPENDENCE [None]
  - DRUG WITHDRAWAL SYNDROME [None]
  - IMPRISONMENT [None]
  - LEGAL PROBLEM [None]
  - PHYSICAL ASSAULT [None]
  - SELF INJURIOUS BEHAVIOUR [None]
  - SUICIDE ATTEMPT [None]
